FAERS Safety Report 5727848-5 (Version None)
Quarter: 2008Q2

REPORT INFORMATION
  Report Type: 
  Country: None (occurrence: None)
  Receive Date: 20080501
  Receipt Date: 20071130
  Transmission Date: 20081010
  Serious: Yes (Other)
  Sender: FDA-Public Use
  Company Number: PHEH2007US14490

PATIENT
  Age: 52 Year
  Sex: Male
  Weight: 88.9 kg

DRUGS (3)
  1. LOTREL [Suspect]
     Indication: HYPERTENSION
     Dosage: 10/20 MG, ONCE/SINGLE, ORAL
     Route: 048
     Dates: start: 20071027, end: 20071027
  2. FLOMAX [Concomitant]
  3. PROTONIX [Concomitant]

REACTIONS (9)
  - ANAPHYLACTIC REACTION [None]
  - LARYNGEAL OEDEMA [None]
  - PALPITATIONS [None]
  - PHARYNGEAL OEDEMA [None]
  - RASH [None]
  - RESPIRATORY DISTRESS [None]
  - SWELLING FACE [None]
  - SWOLLEN TONGUE [None]
  - WHEEZING [None]
